FAERS Safety Report 6520243-0 (Version None)
Quarter: 2009Q4

REPORT INFORMATION
  Report Type: 
  Country: None (occurrence: None)
  Receive Date: 20091229
  Receipt Date: 20091214
  Transmission Date: 20100525
  Serious: Yes (Hospitalization)
  Sender: FDA-Public Use
  Company Number: JP-PFIZER INC-2009307651

PATIENT
  Sex: Male

DRUGS (5)
  1. SELARA [Suspect]
     Indication: HYPERTENSION
     Dosage: 50 MG DAILY
     Route: 048
     Dates: start: 20090703
  2. SELARA [Suspect]
     Dosage: 100 MG DAILY
     Route: 048
     Dates: start: 20090803
  3. CONIEL [Concomitant]
     Indication: HYPERTENSION
     Dosage: 4 MG DAILY
     Route: 048
  4. LOCHOL [Concomitant]
     Indication: HYPERCHOLESTEROLAEMIA
     Dosage: UNK
     Route: 048
  5. MAGNESIUM OXIDE [Concomitant]
     Indication: CONSTIPATION
     Dosage: UNK
     Route: 048

REACTIONS (2)
  - HYPONATRAEMIA [None]
  - METABOLIC ENCEPHALOPATHY [None]
